FAERS Safety Report 9568668 (Version 2)
Quarter: 2013Q3

REPORT INFORMATION
  Report Type: Spontaneous
  Country: US (occurrence: US)
  Receive Date: 20130930
  Receipt Date: 20130930
  Transmission Date: 20140515
  Serious: Yes (Other)
  Sender: FDA-Public Use
  Company Number: US-AMGEN-USASP2013058011

PATIENT
  Age: 28 Year
  Sex: Female

DRUGS (2)
  1. ENBREL [Suspect]
     Indication: PSORIASIS
     Dosage: UNK UNK, QWK
     Route: 065
     Dates: start: 20060901, end: 20070701
  2. LORYNA [Concomitant]
     Dosage: 3MG-0.02 MG, 3-20 MG-MCG

REACTIONS (9)
  - Psoriasis [Unknown]
  - Skin haemorrhage [Unknown]
  - Pruritus [Unknown]
  - Skin exfoliation [Unknown]
  - Skin fissures [Unknown]
  - Skin plaque [Unknown]
  - Erythema [Unknown]
  - Onycholysis [Unknown]
  - Arthralgia [Unknown]
